FAERS Safety Report 5332161-4 (Version None)
Quarter: 2007Q2

REPORT INFORMATION
  Report Type: 
  Country: None (occurrence: None)
  Receive Date: 20070523
  Receipt Date: 20070518
  Transmission Date: 20071010
  Serious: Yes (Other)
  Sender: FDA-Public Use
  Company Number: AR-ASTRAZENECA-2007UW12385

PATIENT
  Age: 85 Year
  Sex: Male

DRUGS (3)
  1. SEROQUEL [Suspect]
     Indication: ABNORMAL BEHAVIOUR
     Route: 048
     Dates: start: 20070401, end: 20070515
  2. DIGITAL [Concomitant]
  3. DEXAMETASONA [Concomitant]

REACTIONS (2)
  - APPLICATION SITE PAPULES [None]
  - URTICARIA [None]
